FAERS Safety Report 19885039 (Version 2)
Quarter: 2022Q1

REPORT INFORMATION
  Report Type: Report from Study
  Country: JP (occurrence: JP)
  Receive Date: 20210927
  Receipt Date: 20220111
  Transmission Date: 20220423
  Serious: Yes (Other)
  Sender: FDA-Public Use
  Company Number: JP-RECORDATI RARE DISEASE INC.-2021003850

PATIENT
  Age: 2 Day
  Sex: Male
  Weight: .146 kg

DRUGS (7)
  1. NEOPROFEN [Suspect]
     Active Substance: IBUPROFEN LYSINE
     Indication: Patent ductus arteriosus
     Dosage: 14 MILLIGRAM
     Route: 042
     Dates: start: 20210626, end: 20210626
  2. ELECTROLYTES NOS [Concomitant]
     Active Substance: ELECTROLYTES NOS
     Indication: Hypoglycaemia
     Dosage: UNK
     Route: 042
     Dates: start: 20210625, end: 20210720
  3. DEXTROSE [Concomitant]
     Active Substance: DEXTROSE
     Indication: Hypoglycaemia
     Dosage: UNK
     Route: 042
     Dates: start: 20210625, end: 20210720
  4. HEPARIN SODIUM [Concomitant]
     Active Substance: HEPARIN SODIUM
     Indication: Hypoglycaemia
     Dosage: UNK
     Route: 042
     Dates: start: 20210624, end: 20210811
  5. CALCIUM GLUCONATE [Concomitant]
     Active Substance: CALCIUM GLUCONATE
     Indication: Hypocalcaemia
     Dosage: UNK
     Route: 042
     Dates: start: 20210624, end: 20210626
  6. DEXTROSE [Concomitant]
     Active Substance: DEXTROSE
     Indication: Hypoglycaemia
     Dosage: UNK
     Route: 042
     Dates: start: 20210624, end: 20210627
  7. CAFFEINE [Concomitant]
     Active Substance: CAFFEINE
     Indication: Apnoeic attack
     Dosage: UNK
     Route: 042
     Dates: start: 20210624, end: 20210712

REACTIONS (5)
  - Hyponatraemia [Recovered/Resolved]
  - Oliguria [Recovered/Resolved]
  - Platelet count decreased [Recovered/Resolved]
  - Intraventricular haemorrhage [Recovering/Resolving]
  - Anaemia [Recovering/Resolving]

NARRATIVE: CASE EVENT DATE: 20210625
